FAERS Safety Report 5151419-5 (Version None)
Quarter: 2006Q4

REPORT INFORMATION
  Report Type: 
  Country: None (occurrence: None)
  Receive Date: 20061115
  Receipt Date: 20061103
  Transmission Date: 20070319
  Serious: Yes (Other)
  Sender: FDA-Public Use
  Company Number: PHBS2006HR17157

PATIENT
  Age: 66 Year
  Sex: Male

DRUGS (2)
  1. GLEEVEC [Suspect]
     Indication: CHRONIC MYELOID LEUKAEMIA
     Route: 048
  2. GLEEVEC [Suspect]
     Dosage: 250 MG
     Route: 048
     Dates: start: 20061017, end: 20061018

REACTIONS (5)
  - DRUG ERUPTION [None]
  - ERYTHEMA [None]
  - RASH MACULAR [None]
  - TOXIC EPIDERMAL NECROLYSIS [None]
  - URTICARIA [None]
